FAERS Safety Report 9177112 (Version 1)
Quarter: 2013Q1

REPORT INFORMATION
  Report Type: Spontaneous
  Country: US (occurrence: None)
  Receive Date: 20130320
  Receipt Date: 20130320
  Transmission Date: 20140127
  Serious: Yes (Other)
  Sender: FDA-Public Use
  Company Number: None

PATIENT
  Age: 29 Year
  Sex: Female
  Weight: 73.48 kg

DRUGS (1)
  1. ADVAIR [Suspect]
     Dosage: 100/50 TWICE DAILY OROPHARINGE

REACTIONS (2)
  - Loss of consciousness [None]
  - Fall [None]
